FAERS Safety Report 5212520-0 (Version None)
Quarter: 2006Q4

REPORT INFORMATION
  Report Type: 
  Country: None (occurrence: None)
  Receive Date: 20061130
  Receipt Date: 20060606
  Transmission Date: 20070319
  Serious: Yes (Other)
  Sender: FDA-Public Use
  Company Number: WAES 0606USA00999

PATIENT
  Age: 79 Year
  Sex: Female

DRUGS (2)
  1. FOSAMAX [Suspect]
     Indication: BONE DENSITY DECREASED
     Dosage: 35 MG/WKY/PO
     Route: 048
     Dates: start: 19990101, end: 20060530
  2. THYROID TAB [Concomitant]

REACTIONS (2)
  - OSTEONECROSIS [None]
  - TOOTH LOSS [None]
